FAERS Safety Report 6103641-9 (Version None)
Quarter: 2009Q1

REPORT INFORMATION
  Report Type: 
  Country: None (occurrence: None)
  Receive Date: 20090305
  Receipt Date: 20090224
  Transmission Date: 20090719
  Serious: Yes (Other)
  Sender: FDA-Public Use
  Company Number: US-JNJFOC-20090206002

PATIENT
  Age: 76 Year
  Sex: Female

DRUGS (3)
  1. REMICADE [Suspect]
     Route: 042
  2. REMICADE [Suspect]
     Route: 042
  3. REMICADE [Suspect]
     Indication: RHEUMATOID ARTHRITIS
     Route: 042

REACTIONS (7)
  - CYANOSIS [None]
  - DYSPNOEA [None]
  - FLUSHING [None]
  - INFECTION [None]
  - INFUSION RELATED REACTION [None]
  - SYNCOPE [None]
  - THYROID CANCER [None]
